FAERS Safety Report 23693567 (Version 1)
Quarter: 2024Q2

REPORT INFORMATION
  Report Type: Spontaneous
  Country: DE (occurrence: DE)
  Receive Date: 20240401
  Receipt Date: 20240401
  Transmission Date: 20240716
  Serious: Yes (Other)
  Sender: FDA-Public Use
  Company Number: DE-GLENMARK PHARMACEUTICALS-2024GMK089402

PATIENT
  Age: 32 Year
  Sex: Female
  Weight: 100 kg

DRUGS (2)
  1. DULOXETINE HYDROCHLORIDE [Suspect]
     Active Substance: DULOXETINE HYDROCHLORIDE
     Indication: Depression
     Dosage: 2 DOSAGE FORM, AM (2 DOSAGE FORM, IN THE MORNING)
     Route: 048
     Dates: start: 202403
  2. DULOXETINE HYDROCHLORIDE [Suspect]
     Active Substance: DULOXETINE HYDROCHLORIDE
     Dosage: 1 DOSAGE FORM, AM (1 DOSAGE FORM, IN THE MORNING)
     Route: 048

REACTIONS (2)
  - Angioedema [Unknown]
  - Headache [Unknown]

NARRATIVE: CASE EVENT DATE: 20240310
